FAERS Safety Report 15450142 (Version 5)
Quarter: 2020Q1

REPORT INFORMATION
  Report Type: Spontaneous
  Country: US (occurrence: US)
  Receive Date: 20181001
  Receipt Date: 20200327
  Transmission Date: 20200409
  Serious: Yes (Other)
  Sender: FDA-Public Use
  Company Number: US-PFIZER INC-2018393196

PATIENT
  Age: 83 Year
  Sex: Female
  Weight: 112.4 kg

DRUGS (3)
  1. LYRICA [Suspect]
     Active Substance: PREGABALIN
     Indication: FIBROMYALGIA
     Dosage: 100 MG, 3X/DAY
     Route: 048
  2. LYRICA [Suspect]
     Active Substance: PREGABALIN
     Indication: NEUROPATHY PERIPHERAL
     Dosage: 100 MG, 2X/DAY
     Route: 048
  3. LYRICA [Suspect]
     Active Substance: PREGABALIN
     Indication: CHRONIC INFLAMMATORY DEMYELINATING POLYRADICULONEUROPATHY

REACTIONS (9)
  - Bronchitis [Unknown]
  - Disorientation [Unknown]
  - Upper limb fracture [Unknown]
  - Limb injury [Unknown]
  - Intentional product misuse [Unknown]
  - Fall [Unknown]
  - Joint injury [Unknown]
  - Chest injury [Unknown]
  - Malaise [Unknown]

NARRATIVE: CASE EVENT DATE: 20190721
